FAERS Safety Report 17083459 (Version 1)
Quarter: 2019Q4

REPORT INFORMATION
  Report Type: Report from Study
  Country: DE (occurrence: DE)
  Receive Date: 20191127
  Receipt Date: 20191127
  Transmission Date: 20200122
  Serious: Yes (Hospitalization)
  Sender: FDA-Public Use
  Company Number: PHHY2018DE056282

PATIENT
  Age: 32 Year
  Sex: Male

DRUGS (2)
  1. ORTOTON [Concomitant]
     Indication: PAIN
     Dosage: 750 MG, UNK
     Route: 065
     Dates: start: 20170404, end: 20180327
  2. GILENYA [Suspect]
     Active Substance: FINGOLIMOD HYDROCHLORIDE
     Indication: RELAPSING-REMITTING MULTIPLE SCLEROSIS
     Dosage: 0.5 MG, QD
     Route: 048
     Dates: start: 20130202

REACTIONS (2)
  - Arthralgia [Recovered/Resolved]
  - Osteonecrosis [Recovered/Resolved]

NARRATIVE: CASE EVENT DATE: 20171221
